FAERS Safety Report 4605849-8 (Version None)
Quarter: 2005Q1

REPORT INFORMATION
  Report Type: 
  Country: None (occurrence: None)
  Receive Date: 20050116
  Receipt Date: 20040419
  Transmission Date: 20050727
  Serious: Yes (Disabling)
  Sender: FDA-Public Use
  Company Number: HQWYE513519APR04

PATIENT
  Sex: 0

DRUGS (1)
  1. EFFEXOR [Suspect]
     Dosage: ORAL
     Route: 048

REACTIONS (1)
  - DRUG WITHDRAWAL SYNDROME [None]
